FAERS Safety Report 14482672 (Version 2)
Quarter: 2018Q1

REPORT INFORMATION
  Report Type: Spontaneous
  Country: US (occurrence: US)
  Receive Date: 20180203
  Receipt Date: 20180227
  Transmission Date: 20180509
  Serious: Yes (Other)
  Sender: FDA-Public Use
  Company Number: US-ROCHE-2067083

PATIENT
  Sex: Female

DRUGS (6)
  1. ESBRIET [Suspect]
     Active Substance: PIRFENIDONE
     Dosage: TAKE 2 TAB BY MOUTH 3X DAILY FOR 1 WEEK
     Route: 048
  2. OMEPRAZOLE. [Concomitant]
     Active Substance: OMEPRAZOLE
  3. ESBRIET [Suspect]
     Active Substance: PIRFENIDONE
     Dosage: TAKE 3 TAB BY MOUTH 3X DAILY FOR 1 WEEK
     Route: 048
  4. ESBRIET [Suspect]
     Active Substance: PIRFENIDONE
     Dosage: TAKE 1 TAB BY MOUTH 3X DAILY FOR 1 WEEK
     Route: 048
  5. SYMBICORT [Concomitant]
     Active Substance: BUDESONIDE\FORMOTEROL FUMARATE DIHYDRATE
  6. ESBRIET [Suspect]
     Active Substance: PIRFENIDONE
     Indication: IDIOPATHIC PULMONARY FIBROSIS
     Route: 048
     Dates: start: 2016

REACTIONS (3)
  - Dyspnoea [Not Recovered/Not Resolved]
  - Liver injury [Recovered/Resolved]
  - Hepatic enzyme increased [Not Recovered/Not Resolved]
